FAERS Safety Report 10765111 (Version 1)
Quarter: 2015Q1

REPORT INFORMATION
  Report Type: Spontaneous
  Country: DK (occurrence: DK)
  Receive Date: 20150205
  Receipt Date: 20150205
  Transmission Date: 20150721
  Serious: Yes (Other)
  Sender: FDA-Public Use
  Company Number: DK-009507513-1502DNK001942

PATIENT
  Age: 43 Year
  Sex: Male
  Weight: 91 kg

DRUGS (3)
  1. CODEINE PHOSPHATE [Concomitant]
     Active Substance: CODEINE PHOSPHATE
     Indication: HEADACHE
     Dosage: UNK
     Dates: start: 2000
  2. NASONEX [Suspect]
     Active Substance: MOMETASONE FUROATE
     Indication: RHINITIS ALLERGIC
     Dosage: DOSE: 2 SPRAYS IN EACH NOSTRIL, TWICE DAILY, STRENGTH: 50 MICROGRAMS/DOSE
     Route: 045
     Dates: start: 2011, end: 20130903
  3. PANODIL [Concomitant]
     Active Substance: ACETAMINOPHEN
     Indication: HEADACHE
     Dosage: DOSE: 2 TABLETS 3 TIMES DAILY
     Route: 048
     Dates: start: 2009

REACTIONS (1)
  - Chorioretinopathy [Recovered/Resolved]

NARRATIVE: CASE EVENT DATE: 20130515
